FAERS Safety Report 13545495 (Version 3)
Quarter: 2017Q3

REPORT INFORMATION
  Report Type: Spontaneous
  Country: US (occurrence: US)
  Receive Date: 20170515
  Receipt Date: 20170912
  Transmission Date: 20171127
  Serious: No
  Sender: FDA-Public Use
  Company Number: US-PFIZER INC-2017205341

PATIENT
  Age: 53 Year
  Sex: Male
  Weight: 91 kg

DRUGS (4)
  1. VIAGRA [Suspect]
     Active Substance: SILDENAFIL CITRATE
     Indication: ERECTILE DYSFUNCTION
     Dosage: 50 MG, 1X/DAY
     Route: 048
  2. VIAGRA [Suspect]
     Active Substance: SILDENAFIL CITRATE
     Dosage: 100 MG (TWO 50 MG), 1X/DAY
     Route: 048
     Dates: start: 20170506
  3. VIAGRA [Suspect]
     Active Substance: SILDENAFIL CITRATE
     Dosage: TOOK A COUPLE OF THEM, TOOK LIKE THREE OF THE 50MG ONCE A DAY OVER A FEW DAYS
     Route: 048
  4. VIAGRA [Suspect]
     Active Substance: SILDENAFIL CITRATE
     Dosage: 100 MG, DAILY
     Route: 048
     Dates: start: 20170808

REACTIONS (4)
  - Incorrect dose administered [Unknown]
  - Drug effect incomplete [Recovered/Resolved]
  - Intentional product misuse [Recovered/Resolved]
  - Drug dispensing error [Recovered/Resolved]

NARRATIVE: CASE EVENT DATE: 20170419
